FAERS Safety Report 20819853 (Version 1)
Quarter: 2022Q2

REPORT INFORMATION
  Report Type: Spontaneous
  Country: US (occurrence: None)
  Receive Date: 20220512
  Receipt Date: 20220512
  Transmission Date: 20220721
  Serious: No
  Sender: FDA-Public Use
  Company Number: None

PATIENT
  Age: 35 Year
  Sex: Male
  Weight: 72 kg

DRUGS (1)
  1. CILGAVIMAB\TIXAGEVIMAB [Suspect]
     Active Substance: CILGAVIMAB\TIXAGEVIMAB
     Indication: COVID-19 prophylaxis
     Dosage: OTHER QUANTITY : 300/300 MG;?FREQUENCY : ONCE;?
     Route: 030
     Dates: start: 20220502, end: 20220502

REACTIONS (1)
  - Headache [None]

NARRATIVE: CASE EVENT DATE: 20220502
